FAERS Safety Report 5823357-3 (Version None)
Quarter: 2008Q3

REPORT INFORMATION
  Report Type: 
  Country: None (occurrence: None)
  Receive Date: 20080725
  Receipt Date: 20080718
  Transmission Date: 20090109
  Serious: Yes (Hospitalization)
  Sender: FDA-Public Use
  Company Number: BE-AMGEN-UK287928

PATIENT
  Sex: Female

DRUGS (4)
  1. AMG 655 [Suspect]
     Indication: NEOPLASM MALIGNANT
     Route: 042
     Dates: start: 20080616
  2. PANITUMUMAB [Suspect]
     Indication: COLORECTAL CANCER
     Route: 042
     Dates: start: 20080616
  3. OMEPRAZOLE [Concomitant]
     Route: 048
  4. EMCONCOR [Concomitant]
     Route: 048

REACTIONS (1)
  - CHILLS [None]
